FAERS Safety Report 7513552-X (Version None)
Quarter: 2011Q2

REPORT INFORMATION
  Report Type: 
  Country: None (occurrence: None)
  Receive Date: 20110531
  Receipt Date: 20110522
  Transmission Date: 20111010
  Serious: Yes (Other)
  Sender: FDA-Public Use
  Company Number: US-BAYER-201039940NA

PATIENT
  Age: 50 Year
  Sex: Female
  Weight: 85 kg

DRUGS (11)
  1. NORVASC [Concomitant]
     Indication: CARDIAC DISORDER
     Dosage: UNK
     Dates: start: 20000101
  2. CARDIZEM [Concomitant]
     Indication: CARDIAC DISORDER
     Dosage: UNK
     Dates: start: 20000101
  3. NABUMETONE [Concomitant]
  4. PREDNISONE [Concomitant]
  5. VITAMIN B [Concomitant]
  6. PRILOSEC [Concomitant]
  7. YAZ [Suspect]
     Indication: ACNE
     Route: 048
     Dates: start: 20070226
  8. CARTIA XT [Concomitant]
  9. ALLEGRA [Concomitant]
  10. NEXIUM [Concomitant]
  11. VITAMIN E [Concomitant]

REACTIONS (2)
  - DEEP VEIN THROMBOSIS [None]
  - THROMBOSIS [None]
